FAERS Safety Report 17700149 (Version 9)
Quarter: 2023Q4

REPORT INFORMATION
  Report Type: Spontaneous
  Country: US (occurrence: US)
  Receive Date: 20200423
  Receipt Date: 20231027
  Transmission Date: 20240109
  Serious: No
  Sender: FDA-Public Use
  Company Number: US-VERTEX PHARMACEUTICALS-2020-009115

PATIENT
  Sex: Female
  Weight: 52 kg

DRUGS (3)
  1. TRIKAFTA [Suspect]
     Active Substance: ELEXACAFTOR\IVACAFTOR\TEZACAFTOR
     Indication: Cystic fibrosis
     Dosage: 2 ORANGE TABS AM AND 1 BLUE TAB PM, TRADITIONAL, REGULAR DOSE
     Route: 048
     Dates: start: 20200303, end: 20200427
  2. TRIKAFTA [Suspect]
     Active Substance: ELEXACAFTOR\IVACAFTOR\TEZACAFTOR
     Dosage: 2 MORNING TABLETS TWICE A WEEK (MONDAY AND THURSDAYS)
     Route: 048
     Dates: start: 20200611, end: 2021
  3. TRIKAFTA [Suspect]
     Active Substance: ELEXACAFTOR\IVACAFTOR\TEZACAFTOR
     Dosage: REDUCED, TWICE A WEEK
     Route: 048
     Dates: start: 20230607

REACTIONS (6)
  - Vomiting [Unknown]
  - Nausea [Unknown]
  - Chromaturia [Unknown]
  - Liver function test increased [Unknown]
  - Rash [Unknown]
  - Pain [Unknown]

NARRATIVE: CASE EVENT DATE: 20200101
